FAERS Safety Report 7923006-4 (Version None)
Quarter: 2011Q4

REPORT INFORMATION
  Report Type: 
  Country: None (occurrence: None)
  Receive Date: 20111117
  Receipt Date: 20110126
  Transmission Date: 20120403
  Serious: No
  Sender: FDA-Public Use
  Company Number: US-AMGEN-USASP2011005050

PATIENT
  Age: 27 Year
  Sex: Female

DRUGS (1)
  1. ENBREL [Suspect]
     Indication: PSORIASIS
     Dates: start: 20080317

REACTIONS (7)
  - COUGH [None]
  - CHEST PAIN [None]
  - STREPTOCOCCAL INFECTION [None]
  - OROPHARYNGEAL PAIN [None]
  - PYREXIA [None]
  - FATIGUE [None]
  - PARANASAL SINUS HYPERSECRETION [None]
